FAERS Safety Report 21973892 (Version 4)
Quarter: 2023Q2

REPORT INFORMATION
  Report Type: Report from Study
  Country: US (occurrence: US)
  Receive Date: 20230209
  Receipt Date: 20230519
  Transmission Date: 20230721
  Serious: No
  Sender: FDA-Public Use
  Company Number: US-002147023-NVSC2023US026215

PATIENT

DRUGS (1)
  1. KESIMPTA [Suspect]
     Active Substance: OFATUMUMAB
     Indication: Product used for unknown indication
     Dosage: UNK
     Route: 065

REACTIONS (8)
  - Pain in extremity [Unknown]
  - Arthralgia [Unknown]
  - Back pain [Unknown]
  - Spinal stenosis [Unknown]
  - Intervertebral disc protrusion [Unknown]
  - Sinus pain [Unknown]
  - Inner ear disorder [Unknown]
  - Headache [Unknown]
